FAERS Safety Report 7969080-0 (Version None)
Quarter: 2011Q4

REPORT INFORMATION
  Report Type: 
  Country: None (occurrence: None)
  Receive Date: 20111209
  Receipt Date: 20111207
  Transmission Date: 20120403
  Serious: No
  Sender: FDA-Public Use
  Company Number: US-TEVA-312686USA

PATIENT
  Sex: Female
  Weight: 59.02 kg

DRUGS (1)
  1. PROAIR HFA [Suspect]
     Dates: start: 20111206

REACTIONS (1)
  - TREMOR [None]
